FAERS Safety Report 24727052 (Version 1)
Quarter: 2024Q4

REPORT INFORMATION
  Report Type: Spontaneous
  Country: FR (occurrence: FR)
  Receive Date: 20241212
  Receipt Date: 20241212
  Transmission Date: 20250115
  Serious: Yes (Hospitalization)
  Sender: MERCK
  Company Number: None

PATIENT
  Age: 34 Year
  Sex: Female
  Weight: 72 kg

DRUGS (1)
  1. KEYTRUDA [Suspect]
     Active Substance: PEMBROLIZUMAB
     Indication: Triple negative breast cancer
     Dosage: 200 MILLIGRAM, Q3W
     Route: 042
     Dates: start: 20230310

REACTIONS (1)
  - Blood creatine phosphokinase increased [Recovered/Resolved]

NARRATIVE: CASE EVENT DATE: 20230530
